FAERS Safety Report 24418849 (Version 2)
Quarter: 2024Q4

REPORT INFORMATION
  Report Type: Report from Study
  Country: BR (occurrence: BR)
  Receive Date: 20241009
  Receipt Date: 20241101
  Transmission Date: 20250115
  Serious: Yes (Hospitalization, Other)
  Sender: CELLTRION
  Company Number: BR-CELLTRION INC.-2023BR006898

PATIENT

DRUGS (5)
  1. INFLIXIMAB [Suspect]
     Active Substance: INFLIXIMAB
     Indication: Rheumatoid arthritis
     Dosage: 3 AMPOULES EVERY MONTH
     Route: 042
     Dates: start: 20220706
  2. INFLIXIMAB [Suspect]
     Active Substance: INFLIXIMAB
     Dosage: 3 AMPOULES EVERY MONTH
     Route: 042
     Dates: start: 20220711
  3. INFLIXIMAB [Suspect]
     Active Substance: INFLIXIMAB
     Dosage: 3 AMPOULES EVERY MONTH
     Route: 042
     Dates: start: 20240919
  4. METHOTREXATE SODIUM [Concomitant]
     Active Substance: METHOTREXATE SODIUM
     Indication: Rheumatoid arthritis
     Dosage: 2 ML VIAL (ROUTE: INJECTABLE)
  5. ALBUTEROL [Concomitant]
     Active Substance: ALBUTEROL
     Indication: Fatigue
     Dosage: 4 SPRAYS

REACTIONS (5)
  - Emphysema [Recovering/Resolving]
  - Pneumonia [Unknown]
  - Dengue fever [Unknown]
  - Influenza [Unknown]
  - Intentional dose omission [Unknown]
